FAERS Safety Report 6223177-4 (Version None)
Quarter: 2009Q2

REPORT INFORMATION
  Report Type: 
  Country: None (occurrence: None)
  Receive Date: 20090609
  Receipt Date: 20090527
  Transmission Date: 20091009
  Serious: Yes (Life-Threatening, Hospitalization, Other)
  Sender: FDA-Public Use
  Company Number: AT-WYE-H09536009

PATIENT
  Age: 45 Year
  Sex: Male

DRUGS (6)
  1. PANTOPRAZOLE SODIUM [Suspect]
     Dosage: 20 MG 1X PER 1 DAY
     Dates: end: 20090418
  2. DEPAKENE [Suspect]
     Dosage: 1000 MG 1X PER 1 DAY
     Dates: end: 20090418
  3. DOMINAL FORTE (PROTHIPENDYL HYDROCHLORIDE, ) [Suspect]
     Dosage: 80 MG,
     Dates: end: 20090418
  4. AKINETON [Concomitant]
  5. ALPRAZOLAM [Concomitant]
  6. ZYPREXA [Concomitant]

REACTIONS (6)
  - BLOOD CREATINE PHOSPHOKINASE INCREASED [None]
  - DELIRIUM [None]
  - DYSKINESIA [None]
  - HYPONATRAEMIA [None]
  - SOMNOLENCE [None]
  - STATUS EPILEPTICUS [None]
